FAERS Safety Report 4479408-4 (Version None)
Quarter: 2004Q4

REPORT INFORMATION
  Report Type: 
  Country: None (occurrence: None)
  Receive Date: 20041015
  Receipt Date: 20040929
  Transmission Date: 20050328
  Serious: Yes (Other)
  Sender: FDA-Public Use
  Company Number: 2004234264JP

PATIENT
  Age: 29 Year
  Sex: Male

DRUGS (3)
  1. SOLU-MEDROL [Suspect]
     Indication: IMMUNOSUPPRESSION
  2. CYCLOSPORINE [Suspect]
     Indication: IMMUNOSUPPRESSION
  3. MYCOPHENOLATE MOFETIL (MYCOPHENOLATE MOFETIL) CAPSULE [Suspect]
     Indication: IMMUNOSUPPRESSION
     Dosage: ORAL
     Route: 048

REACTIONS (3)
  - DISSEMINATED TUBERCULOSIS [None]
  - KIDNEY TRANSPLANT REJECTION [None]
  - PULMONARY TUBERCULOSIS [None]
